FAERS Safety Report 4760418-4 (Version None)
Quarter: 2005Q3

REPORT INFORMATION
  Report Type: 
  Country: None (occurrence: None)
  Receive Date: 20050902
  Receipt Date: 20050615
  Transmission Date: 20060218
  Serious: Yes (Hospitalization, Other)
  Sender: FDA-Public Use
  Company Number: 2005AP03372

PATIENT
  Age: 873 Month
  Sex: Female

DRUGS (2)
  1. NOLVADEX [Suspect]
     Indication: BREAST CANCER
     Route: 048
     Dates: start: 19900224, end: 19950313
  2. UFT [Concomitant]
     Indication: BREAST CANCER
     Route: 048
     Dates: start: 19900224, end: 19950313

REACTIONS (3)
  - ADENOCARCINOMA [None]
  - PANCREATIC CARCINOMA [None]
  - UTERINE CANCER [None]
